FAERS Safety Report 7102551-8 (Version None)
Quarter: 2010Q4

REPORT INFORMATION
  Report Type: 
  Country: None (occurrence: None)
  Receive Date: 20101115
  Receipt Date: 20091029
  Transmission Date: 20110411
  Serious: Yes (Death)
  Sender: FDA-Public Use
  Company Number: SI-ROCHE-740052

PATIENT

DRUGS (1)
  1. MIRCERA [Suspect]
     Dosage: DOSE, ROUTE, FORM AND FREQUENCY NOT PROVIDED
     Route: 065

REACTIONS (1)
  - DEATH [None]
